FAERS Safety Report 8297451-4 (Version None)
Quarter: 2012Q2

REPORT INFORMATION
  Report Type: 
  Country: None (occurrence: None)
  Receive Date: 20120419
  Receipt Date: 20120410
  Transmission Date: 20120825
  Serious: Yes (Hospitalization)
  Sender: FDA-Public Use
  Company Number: US-MYLANLABS-2012S1007523

PATIENT
  Age: 42 Year
  Sex: Male

DRUGS (1)
  1. CLOZAPINE [Suspect]
     Dates: end: 20120406

REACTIONS (4)
  - SEPSIS [None]
  - GRANULOCYTOPENIA [None]
  - CELLULITIS [None]
  - LEUKOPENIA [None]
